FAERS Safety Report 7900621-5 (Version None)
Quarter: 2011Q4

REPORT INFORMATION
  Report Type: 
  Country: None (occurrence: None)
  Receive Date: 20111104
  Receipt Date: 20111024
  Transmission Date: 20120403
  Serious: Yes (Hospitalization, Other)
  Sender: FDA-Public Use
  Company Number: 2011P1009678

PATIENT
  Age: 33 Year
  Sex: Female

DRUGS (2)
  1. VENLAFAXINE [Concomitant]
  2. RISPERIDONE [Suspect]
     Indication: SUICIDE ATTEMPT
     Dosage: 3 MG;BID, 60 MG;X1

REACTIONS (4)
  - ANTICHOLINERGIC SYNDROME [None]
  - OVERDOSE [None]
  - SUICIDE ATTEMPT [None]
  - ELECTROCARDIOGRAM QT PROLONGED [None]
